FAERS Safety Report 8367315-6 (Version None)
Quarter: 2012Q2

REPORT INFORMATION
  Report Type: 
  Country: None (occurrence: None)
  Receive Date: 20120517
  Receipt Date: 20120511
  Transmission Date: 20120825
  Serious: Yes (Other)
  Sender: FDA-Public Use
  Company Number: US-PFIZER INC-2011304424

PATIENT
  Sex: Male

DRUGS (1)
  1. CHANTIX [Suspect]
     Indication: SMOKING CESSATION THERAPY
     Dosage: STARTER PACK 1 AND CONTINUED PACK 1
     Dates: start: 20081201

REACTIONS (19)
  - GASTROINTESTINAL HAEMORRHAGE [None]
  - DEPRESSION [None]
  - PANIC ATTACK [None]
  - AMNESIA [None]
  - MEMORY IMPAIRMENT [None]
  - SUICIDAL BEHAVIOUR [None]
  - ANXIETY [None]
  - INJURY [None]
  - AGGRESSION [None]
  - MANIA [None]
  - ABNORMAL BEHAVIOUR [None]
  - MALAISE [None]
  - FATIGUE [None]
  - LETHARGY [None]
  - IMPULSIVE BEHAVIOUR [None]
  - CONFUSIONAL STATE [None]
  - HALLUCINATION [None]
  - RECTAL HAEMORRHAGE [None]
  - MOOD SWINGS [None]
